FAERS Safety Report 8349143-0 (Version None)
Quarter: 2012Q2

REPORT INFORMATION
  Report Type: 
  Country: None (occurrence: None)
  Receive Date: 20120510
  Receipt Date: 20120430
  Transmission Date: 20120825
  Serious: Yes (Hospitalization)
  Sender: FDA-Public Use
  Company Number: JP-VERTEX PHARMACEUTICALS INC.-AE-2012-006051

PATIENT
  Age: 49 Year
  Sex: Male

DRUGS (8)
  1. OLMESARTAN MEDOXOMIL [Concomitant]
     Route: 048
  2. REBETOL [Concomitant]
     Route: 048
     Dates: end: 20120420
  3. PEG-INTRON [Concomitant]
     Indication: HEPATITIS C
     Route: 058
     Dates: start: 20120203
  4. TELAVIC (TELAPREVIR) [Suspect]
     Indication: HEPATITIS C
     Route: 048
     Dates: start: 20120203
  5. REBETOL [Concomitant]
     Indication: HEPATITIS C
     Route: 048
     Dates: start: 20120203, end: 20120216
  6. NORVASC [Concomitant]
     Route: 048
  7. REBETOL [Concomitant]
     Route: 048
     Dates: start: 20120217, end: 20120308
  8. REBETOL [Concomitant]
     Route: 048
     Dates: start: 20120309

REACTIONS (3)
  - HYPERURICAEMIA [None]
  - PANCREATITIS [None]
  - RASH [None]
